FAERS Safety Report 14394424 (Version 1)
Quarter: 2018Q1

REPORT INFORMATION
  Report Type: Spontaneous
  Country: US (occurrence: US)
  Receive Date: 20180116
  Receipt Date: 20180116
  Transmission Date: 20180509
  Serious: Yes (Other)
  Sender: FDA-Public Use
  Company Number: US-REGENERON PHARMACEUTICALS, INC.-2017-28293

PATIENT

DRUGS (1)
  1. EYLEA [Suspect]
     Active Substance: AFLIBERCEPT
     Indication: AGE-RELATED MACULAR DEGENERATION
     Dosage: UNK, OS
     Dates: start: 20171118

REACTIONS (8)
  - Vision blurred [Unknown]
  - Uveitis [Unknown]
  - Dry eye [Unknown]
  - Vitritis [Unknown]
  - Eye pain [Unknown]
  - Photophobia [Unknown]
  - Ocular discomfort [Unknown]
  - Vision blurred [Unknown]

NARRATIVE: CASE EVENT DATE: 20171121
